FAERS Safety Report 9197490 (Version 1)
Quarter: 2013Q1

REPORT INFORMATION
  Report Type: Spontaneous
  Country: US (occurrence: US)
  Receive Date: 20130328
  Receipt Date: 20130328
  Transmission Date: 20140127
  Serious: Yes (Death, Hospitalization)
  Sender: FDA-Public Use
  Company Number: US-PFIZER INC-2013097710

PATIENT
  Age: 54 Year
  Sex: Male

DRUGS (9)
  1. CHLORAMPHENICOL SODIUM SUCCINATE [Suspect]
     Indication: BACTERIAL INFECTION
     Dosage: 750 MG, EVERY 6 HOURS
     Route: 042
  2. CHLORAMPHENICOL SODIUM SUCCINATE [Suspect]
     Dosage: 500 MG, EVERY 6 HOURS
     Route: 042
  3. TAGAMET [Suspect]
     Indication: GASTROINTESTINAL HAEMORRHAGE
     Dosage: 300 MG, EVERY 12 HOURS
     Route: 042
  4. NAFCILLIN [Concomitant]
     Indication: ANTIBIOTIC THERAPY
     Dosage: 2 G, EVERY 4 HRS
  5. PENICILLIN G POTASSIUM [Concomitant]
     Indication: ANTIBIOTIC THERAPY
     Dosage: 2 MEGAUNITS EVERY 4 HRS
  6. TOBRAMYCIN [Concomitant]
     Indication: ANTIBIOTIC THERAPY
  7. CEFAPIRIN [Concomitant]
     Indication: CELLULITIS
     Dosage: 1 G, EVERY 6 HOURS
     Route: 042
  8. CEFAPIRIN [Concomitant]
     Indication: OSTEOMYELITIS
  9. ALLOPURINOL [Concomitant]
     Dosage: 400 MG/DAY
     Route: 048

REACTIONS (1)
  - Aplastic anaemia [Fatal]
